FAERS Safety Report 6782188-0 (Version None)
Quarter: 2010Q2

REPORT INFORMATION
  Report Type: 
  Country: None (occurrence: None)
  Receive Date: 20100615
  Receipt Date: 20100603
  Transmission Date: 20101027
  Serious: Yes (Congenital Anomaly)
  Sender: FDA-Public Use
  Company Number: 2010AL003292

PATIENT
  Sex: Female

DRUGS (5)
  1. HYDROCORTISONE 2.5% CREAM [Suspect]
     Indication: DERMATITIS ATOPIC
     Dosage: TRPL
     Route: 064
  2. FUCIBET [Concomitant]
  3. CHLORPHENIRAMINE MALEATE [Concomitant]
  4. DIPROBASE [Concomitant]
  5. OILATUM [Concomitant]

REACTIONS (2)
  - CLEFT LIP [None]
  - MATERNAL DRUGS AFFECTING FOETUS [None]
